FAERS Safety Report 19954699 (Version 1)
Quarter: 2021Q4

REPORT INFORMATION
  Report Type: Spontaneous
  Country: US (occurrence: US)
  Receive Date: 20211014
  Receipt Date: 20211014
  Transmission Date: 20220303
  Serious: Yes (Hospitalization, Other)
  Sender: FDA-Public Use
  Company Number: None

PATIENT
  Sex: Female
  Weight: 76.95 kg

DRUGS (1)
  1. TECARTUS [Suspect]
     Active Substance: BREXUCABTAGENE AUTOLEUCEL
     Indication: Mantle cell lymphoma
     Dosage: ?          OTHER FREQUENCY:ONCE;
     Dates: start: 20210816, end: 20210816

REACTIONS (9)
  - Cytokine release syndrome [None]
  - Pyrexia [None]
  - Hypoxia [None]
  - Immune effector cell-associated neurotoxicity syndrome [None]
  - Mental status changes [None]
  - Lethargy [None]
  - Confusional state [None]
  - Tremor [None]
  - Dysgraphia [None]
